FAERS Safety Report 5921413-2 (Version None)
Quarter: 2008Q4

REPORT INFORMATION
  Report Type: 
  Country: None (occurrence: None)
  Receive Date: 20081014
  Receipt Date: 20080930
  Transmission Date: 20090506
  Serious: Yes (Death)
  Sender: FDA-Public Use
  Company Number: 2008BI026010

PATIENT
  Age: 49 Year
  Sex: Male

DRUGS (3)
  1. AVONEX [Suspect]
     Indication: MULTIPLE SCLEROSIS
     Dosage: 30 UG; QW; IM
     Route: 030
     Dates: end: 20030101
  2. . [Concomitant]
  3. . [Concomitant]

REACTIONS (2)
  - MULTIPLE SCLEROSIS [None]
  - SECRETION DISCHARGE [None]
